FAERS Safety Report 6521169-9 (Version None)
Quarter: 2009Q4

REPORT INFORMATION
  Report Type: 
  Country: None (occurrence: None)
  Receive Date: 20091222
  Receipt Date: 20091204
  Transmission Date: 20100525
  Serious: Yes (Hospitalization)
  Sender: FDA-Public Use
  Company Number: BVT-000425

PATIENT
  Age: 17 Year
  Sex: Female

DRUGS (1)
  1. KINERET [Suspect]
     Indication: JUVENILE ARTHRITIS
     Dosage: (100 MG STOPPED UPON HOSPITALISATION SUBCUTANEOUS)
     Route: 058
     Dates: start: 20090915, end: 20091021

REACTIONS (9)
  - BONE MARROW FAILURE [None]
  - CONVULSION [None]
  - INJECTION SITE NECROSIS [None]
  - INJECTION SITE REACTION [None]
  - MULTI-ORGAN FAILURE [None]
  - PYREXIA [None]
  - RASH [None]
  - RESPIRATORY FAILURE [None]
  - TYPE III IMMUNE COMPLEX MEDIATED REACTION [None]
